FAERS Safety Report 6139391-2 (Version None)
Quarter: 2009Q2

REPORT INFORMATION
  Report Type: 
  Country: None (occurrence: None)
  Receive Date: 20090401
  Receipt Date: 20090324
  Transmission Date: 20091009
  Serious: Yes (Hospitalization)
  Sender: FDA-Public Use
  Company Number: US-ASTRAZENECA-2009UW07459

PATIENT
  Age: 55 Year
  Sex: Male

DRUGS (4)
  1. SYMBICORT [Suspect]
     Indication: CHRONIC OBSTRUCTIVE PULMONARY DISEASE
     Route: 055
  2. SYMBICORT [Suspect]
     Dosage: ONE PUFF
     Route: 055
  3. PREDNISONE [Concomitant]
  4. COMBIVENT [Concomitant]

REACTIONS (1)
  - DYSPNOEA [None]
